FAERS Safety Report 4627024-3 (Version None)
Quarter: 2005Q2

REPORT INFORMATION
  Report Type: 
  Country: None (occurrence: None)
  Receive Date: 20050405
  Receipt Date: 20050324
  Transmission Date: 20051028
  Serious: Yes (Hospitalization)
  Sender: FDA-Public Use
  Company Number: US-BRISTOL-MYERS SQUIBB COMPANY-12910956

PATIENT
  Age: 44 Year
  Sex: Female

DRUGS (5)
  1. CISPLATIN [Suspect]
     Route: 042
     Dates: start: 20030702, end: 20030702
  2. IMODIUM [Concomitant]
     Indication: DIARRHOEA
     Route: 048
     Dates: start: 20030714, end: 20030714
  3. COMPAZINE [Concomitant]
     Indication: VOMITING
     Route: 048
     Dates: start: 20030703, end: 20030705
  4. K-DUR 10 [Concomitant]
     Indication: ELECTROLYTE IMBALANCE
     Route: 048
     Dates: start: 20030718, end: 20030718
  5. NORMAL SALINE [Concomitant]
     Indication: FLUID REPLACEMENT
     Route: 042
     Dates: start: 20030710, end: 20030718

REACTIONS (4)
  - ABDOMINAL PAIN [None]
  - DEHYDRATION [None]
  - FEBRILE NEUTROPENIA [None]
  - LEUKOPENIA [None]
